FAERS Safety Report 8491942 (Version 4)
Quarter: 2014Q3

REPORT INFORMATION
  Report Type: Spontaneous
  Country: US (occurrence: US)
  Receive Date: 20120403
  Receipt Date: 20140728
  Transmission Date: 20150326
  Serious: Yes (Other)
  Sender: FDA-Public Use
  Company Number: CHPA2012US005513

PATIENT
  Age: 72 Year
  Sex: Female

DRUGS (13)
  1. EXCEDRIN MIGRAINE [Suspect]
     Active Substance: ACETAMINOPHEN\ASPIRIN\CAFFEINE
     Indication: OFF LABEL USE
  2. GABAPENTIN. [Suspect]
     Active Substance: GABAPENTIN
     Indication: HERPES ZOSTER
     Dosage: 2-3 DF, UNK
     Route: 048
  3. EXCEDRIN MIGRAINE [Suspect]
     Active Substance: ACETAMINOPHEN\ASPIRIN\CAFFEINE
     Indication: MIGRAINE
     Dosage: RECOMMENDED DOSE, UNK
     Route: 048
  4. EXCEDRIN MIGRAINE [Suspect]
     Active Substance: ACETAMINOPHEN\ASPIRIN\CAFFEINE
     Indication: MIGRAINE PROPHYLAXIS
     Dosage: UNK
  5. EXCEDRIN TENSION HEADACHE [Suspect]
     Active Substance: ACETAMINOPHEN\CAFFEINE
     Indication: TENSION HEADACHE
     Dosage: RECOMMENDED DOSE, UNK
     Route: 048
  6. GABAPENTIN. [Suspect]
     Active Substance: GABAPENTIN
     Indication: OFF LABEL USE
  7. EXCEDRIN TENSION HEADACHE [Suspect]
     Active Substance: ACETAMINOPHEN\CAFFEINE
     Dosage: UNK
     Route: 048
  8. EXCEDRIN EXTRA STRENGTH [Suspect]
     Active Substance: ACETAMINOPHEN\ASPIRIN\CAFFEINE
     Indication: MIGRAINE
     Dosage: UNK
     Route: 048
  9. ZYRTEC [Concomitant]
     Active Substance: CETIRIZINE HYDROCHLORIDE
     Indication: HYPERSENSITIVITY
     Dosage: UNK, QHS
  10. EXCEDRIN EXTRA STRENGTH [Suspect]
     Active Substance: ACETAMINOPHEN\ASPIRIN\CAFFEINE
     Indication: OFF LABEL USE
  11. EXCEDRIN EXTRA STRENGTH [Suspect]
     Active Substance: ACETAMINOPHEN\ASPIRIN\CAFFEINE
     Indication: HEADACHE
     Dosage: UNK
     Route: 048
  12. ALLERGY MEDICATION [Concomitant]
     Active Substance: DIPHENHYDRAMINE HYDROCHLORIDE
     Indication: HYPERSENSITIVITY
     Dosage: UNK, ONCE A  MONTH
  13. EXCEDRIN BACK AND BODY [Suspect]
     Active Substance: ACETAMINOPHEN\ASPIRIN
     Indication: BACK PAIN
     Dosage: RECOMMENDED DOSE, UNK
     Route: 048

REACTIONS (6)
  - Fatigue [Unknown]
  - Herpes zoster [Not Recovered/Not Resolved]
  - Expired product administered [Unknown]
  - Drug ineffective for unapproved indication [Unknown]
  - Incorrect dose administered [Unknown]
  - Foot fracture [Unknown]

NARRATIVE: CASE EVENT DATE: 201101
